FAERS Safety Report 7079255-3 (Version None)
Quarter: 2010Q4

REPORT INFORMATION
  Report Type: 
  Country: None (occurrence: None)
  Receive Date: 20101102
  Receipt Date: 20101027
  Transmission Date: 20110411
  Serious: Yes (Other)
  Sender: FDA-Public Use
  Company Number: CHPA2010GB16869

PATIENT
  Age: 21 Year
  Sex: Male

DRUGS (4)
  1. IBUPROFEN (NGX) [Suspect]
     Dosage: 800 MG, QD (^3 TO 4 TABLETS IN 1 DAY^)
     Route: 048
     Dates: start: 20080128, end: 20080128
  2. SUDAFED PE NASAL DECONGESTANT [Suspect]
     Dosage: 60 MG, QD
     Route: 048
     Dates: start: 20080128, end: 20080128
  3. ANTIHISTAMINES [Suspect]
     Dosage: UNK, UNK
     Route: 048
     Dates: start: 20080128, end: 20080128
  4. ALCOHOL [Suspect]
     Dosage: 1 (^LITER^) DF, QD
     Route: 048
     Dates: start: 20080128, end: 20080128

REACTIONS (3)
  - DEHYDRATION [None]
  - OVERDOSE [None]
  - TACHYCARDIA [None]
